FAERS Safety Report 23969778 (Version 2)
Quarter: 2024Q3

REPORT INFORMATION
  Report Type: Spontaneous
  Country: US (occurrence: US)
  Receive Date: 20240613
  Receipt Date: 20240715
  Transmission Date: 20241017
  Serious: Yes (Life-Threatening, Hospitalization)
  Sender: TEVA
  Company Number: US-TEVA-VS-3207025

PATIENT
  Age: 65 Year
  Sex: Female

DRUGS (1)
  1. METHOTREXATE [Suspect]
     Active Substance: METHOTREXATE
     Indication: Product used for unknown indication
     Dosage: FORMULATION: PILLS
     Route: 065

REACTIONS (11)
  - Overdose [Unknown]
  - Cough [Recovered/Resolved]
  - Hypoxia [Recovered/Resolved]
  - Lip swelling [Recovered/Resolved]
  - Neurotoxicity [Recovered/Resolved]
  - Inappropriate schedule of product administration [Unknown]
  - Encephalopathy [Recovered/Resolved]
  - Acute kidney injury [Recovered/Resolved]
  - Pancytopenia [Recovered/Resolved]
  - Chest pain [Recovered/Resolved]
  - Pyrexia [Recovered/Resolved]
